FAERS Safety Report 6732343-0 (Version None)
Quarter: 2010Q2

REPORT INFORMATION
  Report Type: 
  Country: None (occurrence: None)
  Receive Date: 20100519
  Receipt Date: 20100512
  Transmission Date: 20101027
  Serious: Yes (Hospitalization)
  Sender: FDA-Public Use
  Company Number: BE-ROCHE-633626

PATIENT
  Sex: Female
  Weight: 67 kg

DRUGS (7)
  1. BEVACIZUMAB [Suspect]
     Indication: BREAST CANCER
     Dosage: ROUTE REPORTED: PAC, FORM REPORTED AS IV
     Route: 042
     Dates: start: 20090504
  2. CYCLOPHOSPHAMIDE [Suspect]
     Indication: BREAST CANCER
     Route: 065
     Dates: start: 20090504
  3. EPIRUBICIN [Suspect]
     Indication: BREAST CANCER
     Route: 065
     Dates: start: 20090504
  4. FLUOROURACIL [Suspect]
     Indication: BREAST CANCER
     Route: 065
     Dates: start: 20090504
  5. PARACETAMOL [Concomitant]
     Dates: start: 20090515, end: 20090520
  6. TOBRADEX [Concomitant]
     Dates: start: 20090515, end: 20090520
  7. TAVANIC [Concomitant]

REACTIONS (3)
  - CHOLECYSTITIS [None]
  - FEBRILE NEUTROPENIA [None]
  - THROMBOCYTOPENIA [None]
